FAERS Safety Report 9129332 (Version 1)
Quarter: 2013Q1

REPORT INFORMATION
  Report Type: Spontaneous
  Country: US (occurrence: US)
  Receive Date: 20130228
  Receipt Date: 20130228
  Transmission Date: 20140127
  Serious: No
  Sender: FDA-Public Use
  Company Number: US-ABBOTT-13P-163-1036330-00

PATIENT
  Sex: Male
  Weight: 78.09 kg

DRUGS (3)
  1. ANDROGEL [Suspect]
     Indication: BLOOD TESTOSTERONE DECREASED
     Dosage: 4 PUMP ACTUATIONS DAILY
     Dates: start: 201210, end: 20121216
  2. ANDROGEL [Suspect]
     Dosage: 3 PUMP ACTUATION DAILY
     Dates: start: 201212, end: 201301
  3. ANDROGEL [Suspect]
     Dosage: 5 PUMP ACTUATIONS DAILY
     Dates: start: 20130110

REACTIONS (1)
  - Blood testosterone decreased [Not Recovered/Not Resolved]
